FAERS Safety Report 8699042 (Version 2)
Quarter: 2013Q4

REPORT INFORMATION
  Report Type: Spontaneous
  Country: US (occurrence: US)
  Receive Date: 20120802
  Receipt Date: 20131105
  Transmission Date: 20140711
  Serious: Yes (Other)
  Sender: FDA-Public Use
  Company Number: US-009507513-1207USA011087

PATIENT
  Sex: Male

DRUGS (7)
  1. ZOCOR [Suspect]
     Dosage: 7 ANZ, UNK
     Route: 048
  2. AGGRENOX [Suspect]
     Dosage: 14 ANZ, UNK
     Route: 048
  3. CARMEN [Suspect]
     Dosage: 14 ANZ, UNK
     Route: 048
  4. OMEP [Suspect]
     Dosage: 14 ANZ, UNK
     Route: 048
  5. TAMSULOSIN HYDROCHLORIDE [Suspect]
     Dosage: 7 ANZ, UNK
     Route: 048
  6. PENTALONG [Suspect]
     Dosage: 14 ANZ, UNK
     Route: 048
  7. METOPROLOL [Suspect]
     Dosage: 7 ANZ, UNK
     Route: 048

REACTIONS (4)
  - Hypotension [Unknown]
  - Dyspnoea [Unknown]
  - Accidental exposure to product [Unknown]
  - Medication error [Unknown]
